FAERS Safety Report 24370306 (Version 1)
Quarter: 2024Q3

REPORT INFORMATION
  Report Type: Report from Study
  Country: US (occurrence: US)
  Receive Date: 20240927
  Receipt Date: 20240927
  Transmission Date: 20241016
  Serious: No
  Sender: ROCHE
  Company Number: US-ROCHE-3559045

PATIENT
  Age: 64 Year
  Sex: Male

DRUGS (13)
  1. LUCENTIS [Suspect]
     Active Substance: RANIBIZUMAB
     Indication: Diabetic retinopathy
     Dosage: 0.3 MG/0.05 ML?DOS: 01/MAR/2024
     Route: 050
  2. LUCENTIS [Suspect]
     Active Substance: RANIBIZUMAB
     Indication: Macular oedema
  3. LUCENTIS [Suspect]
     Active Substance: RANIBIZUMAB
     Indication: Epiretinal membrane
  4. PIOGLITAZONE [Concomitant]
     Active Substance: PIOGLITAZONE
  5. OZEMPIC [Concomitant]
     Active Substance: SEMAGLUTIDE
  6. ESCITALOPRAM [Concomitant]
     Active Substance: ESCITALOPRAM OXALATE
  7. LOSARTAN [Concomitant]
     Active Substance: LOSARTAN\LOSARTAN POTASSIUM
  8. NEBIVOLOL [Concomitant]
     Active Substance: NEBIVOLOL
  9. ATORVASTATIN [Concomitant]
     Active Substance: ATORVASTATIN
  10. LOTREL [Concomitant]
     Active Substance: AMLODIPINE BESYLATE\BENAZEPRIL HYDROCHLORIDE
     Dosage: 10 MG/40 MG
     Route: 048
  11. ZOFRAN [Concomitant]
     Active Substance: ONDANSETRON HYDROCHLORIDE
  12. TRAMADOL [Concomitant]
     Active Substance: TRAMADOL\TRAMADOL HYDROCHLORIDE
  13. GABAPENTIN [Concomitant]
     Active Substance: GABAPENTIN

REACTIONS (2)
  - Myalgia [Unknown]
  - Arthralgia [Unknown]
